FAERS Safety Report 5525940-1 (Version None)
Quarter: 2007Q4

REPORT INFORMATION
  Report Type: 
  Country: None (occurrence: None)
  Receive Date: 20071126
  Receipt Date: 20071115
  Transmission Date: 20080405
  Serious: Yes (Death)
  Sender: FDA-Public Use
  Company Number: CH-SANOFI-SYNTHELABO-F01200701357

PATIENT
  Sex: Male

DRUGS (6)
  1. LANTUS [Concomitant]
     Route: 058
  2. UNKNOWN DRUG [Concomitant]
  3. ASPIRIN [Concomitant]
     Dosage: 100 MG
     Route: 048
  4. XELODA [Suspect]
     Route: 048
     Dates: start: 20071004
  5. GEMCITABINE [Suspect]
     Dosage: 2000 MG
     Route: 041
     Dates: start: 20071004, end: 20071004
  6. OXALIPLATIN [Suspect]
     Indication: ADENOCARCINOMA PANCREAS
     Dosage: 260 MG
     Route: 041
     Dates: start: 20071004, end: 20071004

REACTIONS (3)
  - DIARRHOEA [None]
  - HEPATORENAL SYNDROME [None]
  - SEPSIS [None]
